FAERS Safety Report 18777803 (Version 3)
Quarter: 2021Q3

REPORT INFORMATION
  Report Type: Spontaneous
  Country: US (occurrence: US)
  Receive Date: 20210122
  Receipt Date: 20210722
  Transmission Date: 20211014
  Serious: No
  Sender: FDA-Public Use
  Company Number: 2020SGN03640

PATIENT
  Sex: Female

DRUGS (7)
  1. TUKYSA [Suspect]
     Active Substance: TUCATINIB
     Indication: BREAST CANCER FEMALE
     Dosage: UNK, BID
     Route: 048
  2. XELODA [Concomitant]
     Active Substance: CAPECITABINE
     Indication: BREAST CANCER FEMALE
     Dosage: 1500 MG, BID
     Route: 065
  3. HERCEPTIN [Concomitant]
     Active Substance: TRASTUZUMAB
  4. TUKYSA [Suspect]
     Active Substance: TUCATINIB
     Dosage: UNK
  5. TUKYSA [Suspect]
     Active Substance: TUCATINIB
     Dosage: UNK
  6. TUKYSA [Suspect]
     Active Substance: TUCATINIB
     Dosage: UNK
  7. TUKYSA [Suspect]
     Active Substance: TUCATINIB
     Dosage: UNK

REACTIONS (18)
  - Gastric dilatation [Unknown]
  - Abdominal distension [Unknown]
  - Arthralgia [Unknown]
  - Asthenia [Unknown]
  - Weight increased [Unknown]
  - Gingival bleeding [Unknown]
  - Cognitive disorder [Unknown]
  - Skin exfoliation [Unknown]
  - Taste disorder [Unknown]
  - Dry skin [Unknown]
  - Urinary tract infection [Unknown]
  - Acne [Unknown]
  - Pain in extremity [Unknown]
  - Mobility decreased [Unknown]
  - Fatigue [Unknown]
  - Unevaluable event [Unknown]
  - Palmar-plantar erythrodysaesthesia syndrome [Unknown]
  - Nausea [Unknown]
